FAERS Safety Report 17141285 (Version 2)
Quarter: 2019Q4

REPORT INFORMATION
  Report Type: Spontaneous
  Country: US (occurrence: US)
  Receive Date: 20191211
  Receipt Date: 20191213
  Transmission Date: 20200122
  Serious: Yes (Other)
  Sender: FDA-Public Use
  Company Number: US-GW PHARMA-201912USGW4496

PATIENT

DRUGS (1)
  1. EPIDIOLEX [Suspect]
     Active Substance: CANNABIDIOL
     Indication: EPILEPSY
     Dosage: 10.6 MG/KG/DAY, 300 MILLIGRAM, BID
     Dates: start: 201908, end: 2019

REACTIONS (4)
  - Product use issue [Not Recovered/Not Resolved]
  - Product dose omission [Recovered/Resolved]
  - Seizure [Unknown]
  - Product supply issue [Unknown]

NARRATIVE: CASE EVENT DATE: 2019
